FAERS Safety Report 12511214 (Version 1)
Quarter: 2016Q2

REPORT INFORMATION
  Report Type: Report from Study
  Country: BR (occurrence: BR)
  Receive Date: 20160629
  Receipt Date: 20160629
  Transmission Date: 20160815
  Serious: Yes (Other)
  Sender: FDA-Public Use
  Company Number: PHHY2016BR087004

PATIENT
  Sex: Female
  Weight: 76 kg

DRUGS (4)
  1. SEEBRI BREEZHALER [Suspect]
     Active Substance: GLYCOPYRROLATE
     Indication: CHRONIC OBSTRUCTIVE PULMONARY DISEASE
     Dosage: 50 MG, QD
     Route: 055
  2. ONBREZ BREEZHALER [Suspect]
     Active Substance: INDACATEROL
     Indication: CHRONIC OBSTRUCTIVE PULMONARY DISEASE
     Dosage: 150 UG, UNK
     Route: 055
  3. ONBREZ BREEZHALER [Suspect]
     Active Substance: INDACATEROL
     Indication: LYMPHADENOPATHY
  4. FORASEQ [Suspect]
     Active Substance: BUDESONIDE\FORMOTEROL FUMARATE
     Indication: PRODUCT USED FOR UNKNOWN INDICATION
     Dosage: 1 DF (BUDESONIDE 400 UG AND FORMOTEROL FUMARATE 12 UG), BID
     Route: 055

REACTIONS (9)
  - Muscular weakness [Unknown]
  - Fall [Unknown]
  - Accident [Unknown]
  - Muscular dystrophy [Unknown]
  - Myalgia [Unknown]
  - Gait disturbance [Unknown]
  - Hypokinesia [Unknown]
  - Urinary incontinence [Unknown]
  - Anal incontinence [Unknown]
